FAERS Safety Report 15506171 (Version 1)
Quarter: 2018Q4

REPORT INFORMATION
  Report Type: Report from Study
  Country: US (occurrence: US)
  Receive Date: 20181016
  Receipt Date: 20181016
  Transmission Date: 20190205
  Serious: Yes (Other)
  Sender: FDA-Public Use
  Company Number: US-ROCHE-2013579

PATIENT
  Sex: Male
  Weight: 54 kg

DRUGS (3)
  1. NUTROPIN AQ [Suspect]
     Active Substance: SOMATROPIN
     Indication: GROWTH HORMONE DEFICIENCY
     Route: 058
  2. NUTROPIN AQ [Suspect]
     Active Substance: SOMATROPIN
     Route: 058
  3. NUTROPIN AQ [Suspect]
     Active Substance: SOMATROPIN
     Indication: HYPOPITUITARISM
     Dosage: ONGOING:YES
     Route: 058

REACTIONS (6)
  - Constipation [Unknown]
  - Insulin-like growth factor increased [Unknown]
  - Cataract [Unknown]
  - Alopecia [Unknown]
  - Nuclear magnetic resonance imaging abnormal [Unknown]
  - Acne [Unknown]
